FAERS Safety Report 16272468 (Version 1)
Quarter: 2019Q2

REPORT INFORMATION
  Report Type: Spontaneous
  Country: NL (occurrence: NL)
  Receive Date: 20190506
  Receipt Date: 20190506
  Transmission Date: 20190711
  Serious: Yes (Other)
  Sender: FDA-Public Use
  Company Number: NL-ROCHE-2313083

PATIENT
  Age: 60 Year
  Sex: Female
  Weight: 62 kg

DRUGS (2)
  1. NACL [Concomitant]
     Active Substance: SODIUM CHLORIDE
     Route: 065
  2. BEVACIZUMAB. [Suspect]
     Active Substance: BEVACIZUMAB
     Indication: OVARIAN CANCER METASTATIC
     Dosage: 15MG/KG IN NACL 0,9%, TOTAL VOLUME 100ML?1 MG/MG (MILLIGRAM PER MILLIGRAM)
     Route: 065
     Dates: start: 201805

REACTIONS (1)
  - Cholangitis sclerosing [Not Recovered/Not Resolved]

NARRATIVE: CASE EVENT DATE: 20181201
